FAERS Safety Report 5845251-4 (Version None)
Quarter: 2008Q3

REPORT INFORMATION
  Report Type: 
  Country: None (occurrence: None)
  Receive Date: 20080814
  Receipt Date: 20080812
  Transmission Date: 20090109
  Serious: Yes (Other)
  Sender: FDA-Public Use
  Company Number: B0533173A

PATIENT
  Age: 78 Year
  Sex: Female
  Weight: 62 kg

DRUGS (1)
  1. ARIXTRA [Suspect]
     Indication: DRUG USE FOR UNKNOWN INDICATION
     Route: 065
     Dates: start: 20080706, end: 20080707

REACTIONS (3)
  - BLOOD IMMUNOGLOBULIN E INCREASED [None]
  - DERMATITIS ALLERGIC [None]
  - THROMBOCYTOPENIA [None]
